FAERS Safety Report 4556889-9 (Version None)
Quarter: 2005Q1

REPORT INFORMATION
  Report Type: 
  Country: None (occurrence: None)
  Receive Date: 20050119
  Receipt Date: 20050119
  Transmission Date: 20050727
  Serious: No
  Sender: FDA-Public Use
  Company Number: None

PATIENT
  Sex: Male
  Weight: 103 kg

DRUGS (8)
  1. ZOCOR [Suspect]
     Indication: HYPERCHOLESTEROLAEMIA
     Dosage: 80MG   QHS   ORAL
     Route: 048
     Dates: start: 20041128, end: 20050103
  2. FELODIPINE [Concomitant]
  3. LISINOPRIL [Concomitant]
  4. NTG SL [Concomitant]
  5. COUMADIN [Concomitant]
  6. SOTALOL HCL [Concomitant]
  7. NAPROXEN [Concomitant]
  8. COMBIVENT [Concomitant]

REACTIONS (1)
  - MYALGIA [None]
